FAERS Safety Report 12171732 (Version 2)
Quarter: 2016Q1

REPORT INFORMATION
  Report Type: Spontaneous
  Country: FR (occurrence: FR)
  Receive Date: 20160311
  Receipt Date: 20160323
  Transmission Date: 20160526
  Serious: Yes (Other)
  Sender: FDA-Public Use
  Company Number: FR-CONCORDIA PHARMACEUTICALS INC.-CO-ZO-FR-2016-033

PATIENT
  Age: 32 Year
  Sex: Female

DRUGS (5)
  1. ZONEGRAN [Suspect]
     Active Substance: ZONISAMIDE
     Dosage: 200 MG
     Route: 048
     Dates: start: 20150929, end: 20160128
  2. ZONEGRAN [Suspect]
     Active Substance: ZONISAMIDE
     Dosage: 400 MG
     Route: 048
     Dates: start: 201602
  3. LAMICTAL [Suspect]
     Active Substance: LAMOTRIGINE
     Indication: EPILEPSY
     Route: 048
     Dates: start: 1999
  4. ZONEGRAN [Suspect]
     Active Substance: ZONISAMIDE
     Dosage: 300 MG
     Route: 048
     Dates: start: 20160129, end: 201602
  5. ZONEGRAN [Suspect]
     Active Substance: ZONISAMIDE
     Indication: EPILEPSY
     Route: 048
     Dates: start: 20120629, end: 20150928

REACTIONS (2)
  - Seizure [Recovered/Resolved]
  - Exposure during pregnancy [Not Recovered/Not Resolved]

NARRATIVE: CASE EVENT DATE: 201510
